FAERS Safety Report 6788104-X (Version None)
Quarter: 2010Q2

REPORT INFORMATION
  Report Type: 
  Country: None (occurrence: None)
  Receive Date: 20100623
  Receipt Date: 20080304
  Transmission Date: 20101027
  Serious: No
  Sender: FDA-Public Use
  Company Number: US-PFIZER INC-2007104475

PATIENT
  Age: 29 Year
  Sex: Male
  Weight: 79.38 kg

DRUGS (3)
  1. GEODON [Suspect]
     Indication: PSYCHOTIC DISORDER
     Dates: start: 20070905, end: 20071108
  2. DEPAKOTE [Concomitant]
  3. LITHIUM [Concomitant]

REACTIONS (1)
  - ERECTILE DYSFUNCTION [None]
